FAERS Safety Report 18723055 (Version 1)
Quarter: 2021Q1

REPORT INFORMATION
  Report Type: Spontaneous
  Country: US (occurrence: US)
  Receive Date: 20210109
  Receipt Date: 20210109
  Transmission Date: 20210419
  Serious: Yes (Other)
  Sender: FDA-Public Use
  Company Number: None

PATIENT
  Age: 90 Year
  Sex: Female
  Weight: 50.5 kg

DRUGS (1)
  1. REMDESIVIR. [Suspect]
     Active Substance: REMDESIVIR
     Indication: COVID-19
     Route: 040
     Dates: start: 20210104, end: 20210104

REACTIONS (5)
  - Flushing [None]
  - Erythema [None]
  - Tachycardia [None]
  - Respiratory rate increased [None]
  - Blood pressure increased [None]

NARRATIVE: CASE EVENT DATE: 20210105
